FAERS Safety Report 5643629-5 (Version None)
Quarter: 2008Q1

REPORT INFORMATION
  Report Type: 
  Country: None (occurrence: None)
  Receive Date: 20080131
  Receipt Date: 20071226
  Transmission Date: 20080703
  Serious: Yes (Other)
  Sender: FDA-Public Use
  Company Number: 163-21880-07121420

PATIENT
  Age: 65 Year
  Sex: Female

DRUGS (1)
  1. REVLIMID [Suspect]
     Indication: MULTIPLE MYELOMA
     Dosage: 15MG. EVERY OTHER DAY ON D1-21 AS DIRECTED ORAL
     Route: 048
     Dates: start: 20071101, end: 20070101

REACTIONS (1)
  - RENAL FAILURE [None]
